FAERS Safety Report 16941926 (Version 1)
Quarter: 2019Q4

REPORT INFORMATION
  Report Type: Spontaneous
  Country: US (occurrence: US)
  Receive Date: 20191021
  Receipt Date: 20191021
  Transmission Date: 20200122
  Serious: No
  Sender: FDA-Public Use
  Company Number: US-KVK-TECH, INC-2075872

PATIENT

DRUGS (1)
  1. PHENTERMINE HYDROCHLORIDE. [Suspect]
     Active Substance: PHENTERMINE HYDROCHLORIDE
     Indication: DECREASED APPETITE
     Route: 065

REACTIONS (5)
  - Product colour issue [Unknown]
  - Drug ineffective [Unknown]
  - Dizziness [Unknown]
  - Joint swelling [Unknown]
  - Product size issue [Unknown]
